FAERS Safety Report 23996874 (Version 1)
Quarter: 2024Q2

REPORT INFORMATION
  Report Type: Report from Study
  Country: US (occurrence: US)
  Receive Date: 20240620
  Receipt Date: 20240620
  Transmission Date: 20240715
  Serious: Yes (Other)
  Sender: FDA-Public Use
  Company Number: US-ABBVIE-5802877

PATIENT
  Age: 61 Year
  Sex: Female

DRUGS (1)
  1. HUMIRA [Suspect]
     Active Substance: ADALIMUMAB
     Indication: Product used for unknown indication
     Dosage: FORM STRENGTH 40 MILLIGRAM, CITRATE FREE
     Route: 058

REACTIONS (10)
  - Chronic kidney disease [Recovering/Resolving]
  - Malaise [Unknown]
  - Psoriasis [Unknown]
  - Sepsis [Recovering/Resolving]
  - Alopecia [Unknown]
  - Furuncle [Unknown]
  - Acne [Unknown]
  - Skin fissures [Unknown]
  - Skin exfoliation [Unknown]
  - Condition aggravated [Unknown]

NARRATIVE: CASE EVENT DATE: 20221219
